FAERS Safety Report 7427867-7 (Version None)
Quarter: 2011Q2

REPORT INFORMATION
  Report Type: 
  Country: None (occurrence: None)
  Receive Date: 20110421
  Receipt Date: 20110415
  Transmission Date: 20111010
  Serious: Yes (Death, Other)
  Sender: FDA-Public Use
  Company Number: US-ELI_LILLY_AND_COMPANY-US201104004910

PATIENT
  Age: 85 Year
  Sex: Male

DRUGS (2)
  1. NOVOLOG [Concomitant]
     Dosage: UNK
  2. HUMALOG [Suspect]
     Indication: DIABETES MELLITUS

REACTIONS (2)
  - DEATH [None]
  - RENAL FAILURE [None]
